FAERS Safety Report 4546033-6 (Version None)
Quarter: 2005Q1

REPORT INFORMATION
  Report Type: 
  Country: None (occurrence: None)
  Receive Date: 20050106
  Receipt Date: 20041227
  Transmission Date: 20050727
  Serious: Yes (Hospitalization)
  Sender: FDA-Public Use
  Company Number: US-BRISTOL-MYERS SQUIBB COMPANY-12810503

PATIENT
  Age: 54 Year
  Sex: Male
  Weight: 60 kg

DRUGS (6)
  1. CISPLATIN [Suspect]
     Indication: LARYNGEAL CANCER
     Route: 042
     Dates: start: 20000501, end: 20000501
  2. CETUXIMAB [Suspect]
     Indication: LARYNGEAL CANCER
     Route: 042
     Dates: start: 20000101, end: 20000101
  3. ZOFRAN [Concomitant]
  4. AMBIEN [Concomitant]
  5. DURAGESIC [Concomitant]
  6. PRILOSEC [Concomitant]

REACTIONS (7)
  - BACTERIAL INFECTION [None]
  - BLOOD CULTURE POSITIVE [None]
  - HAEMATOCRIT DECREASED [None]
  - NAUSEA [None]
  - PNEUMONIA [None]
  - PYREXIA [None]
  - VOMITING [None]
